FAERS Safety Report 12487736 (Version 1)
Quarter: 2016Q2

REPORT INFORMATION
  Report Type: Spontaneous
  Country: TN (occurrence: TN)
  Receive Date: 20160622
  Receipt Date: 20160622
  Transmission Date: 20160815
  Serious: Yes (Other)
  Sender: FDA-Public Use
  Company Number: TN-ACCORD-041517

PATIENT
  Age: 44 Year
  Sex: Male

DRUGS (2)
  1. MYCOPHENOLIC ACID. [Concomitant]
     Active Substance: MYCOPHENOLIC ACID
     Indication: RENAL TRANSPLANT
     Dosage: RECEIVED FROM SINCE 07 YEARS.
     Dates: start: 200706, end: 201403
  2. TACROLIMUS. [Suspect]
     Active Substance: TACROLIMUS
     Indication: RENAL TRANSPLANT
     Dosage: RECEIVED DOSE 2 MG/DAY FROM JUN-2007 TO MAR-2014.
     Dates: start: 200706

REACTIONS (2)
  - Transcription medication error [Unknown]
  - Transplant rejection [Recovering/Resolving]
